FAERS Safety Report 22012425 (Version 1)
Quarter: 2023Q1

REPORT INFORMATION
  Report Type: Spontaneous
  Country: PR (occurrence: US)
  Receive Date: 20230220
  Receipt Date: 20230220
  Transmission Date: 20230417
  Serious: Yes (Other)
  Sender: FDA-Public Use
  Company Number: PR-ALLERGAN-2229513US

PATIENT
  Age: 67 Year
  Sex: Female

DRUGS (1)
  1. OZURDEX [Suspect]
     Active Substance: DEXAMETHASONE
     Indication: Diabetic retinopathy
     Dosage: 0.7 MG, SINGLE
     Route: 031
     Dates: start: 20220510, end: 20220510

REACTIONS (2)
  - Endophthalmitis [Unknown]
  - Suspected product contamination [Unknown]

NARRATIVE: CASE EVENT DATE: 20220623
